FAERS Safety Report 7831097-4 (Version None)
Quarter: 2011Q4

REPORT INFORMATION
  Report Type: 
  Country: None (occurrence: None)
  Receive Date: 20111021
  Receipt Date: 20111019
  Transmission Date: 20120403
  Serious: Yes (Death, Hospitalization, Other)
  Sender: FDA-Public Use
  Company Number: PHHY2011CR84084

PATIENT
  Age: 68 Year
  Sex: Female

DRUGS (4)
  1. ZOLEDRONOC ACID [Suspect]
     Indication: OSTEOPOROSIS
     Dosage: 5 MG, UNK
     Route: 042
     Dates: start: 20100101
  2. LORAZEPAM [Concomitant]
  3. FORADIL [Concomitant]
  4. CORTISONE ACETATE [Concomitant]

REACTIONS (9)
  - VARICES OESOPHAGEAL [None]
  - COMA [None]
  - SEPSIS [None]
  - DEATH [None]
  - HAEMORRHAGE [None]
  - NOSOCOMIAL INFECTION [None]
  - HEPATIC CIRRHOSIS [None]
  - ULCER [None]
  - RESPIRATORY ARREST [None]
